FAERS Safety Report 11643884 (Version 1)
Quarter: 2015Q4

REPORT INFORMATION
  Report Type: Report from Study
  Country: US (occurrence: US)
  Receive Date: 20151020
  Receipt Date: 20151020
  Transmission Date: 20160304
  Serious: No
  Sender: FDA-Public Use
  Company Number: US-AMGEN-USASL2015105713

PATIENT
  Age: 49 Year
  Sex: Female

DRUGS (1)
  1. ENBREL [Suspect]
     Active Substance: ETANERCEPT
     Indication: PSORIATIC ARTHROPATHY
     Dosage: 50 MG, UNK
     Route: 065
     Dates: start: 20150509

REACTIONS (14)
  - Malaise [Unknown]
  - Dry eye [Recovering/Resolving]
  - Injection site pain [Unknown]
  - Crying [Unknown]
  - Sinus congestion [Unknown]
  - Eye pruritus [Recovering/Resolving]
  - Nasal congestion [Unknown]
  - Hypersensitivity [Unknown]
  - Pain in extremity [Unknown]
  - Pain [Unknown]
  - Injection site pruritus [Unknown]
  - Injection site bruising [Unknown]
  - Cough [Unknown]
  - Injection site reaction [Unknown]

NARRATIVE: CASE EVENT DATE: 2015
